FAERS Safety Report 8593512 (Version 3)
Quarter: 2013Q2

REPORT INFORMATION
  Report Type: Report from Study
  Country: MX (occurrence: MX)
  Receive Date: 20120604
  Receipt Date: 20130528
  Transmission Date: 20140414
  Serious: Yes (Other)
  Sender: FDA-Public Use
  Company Number: PHHY2012MX046489

PATIENT
  Age: 77 Year
  Sex: Female

DRUGS (8)
  1. ACLASTA [Suspect]
     Indication: OSTEOPOROSIS
     Dosage: 5 MG/100 ML ANNUALLY
     Route: 042
     Dates: start: 20120524
  2. GLUCOSAMINE [Concomitant]
     Indication: HYPERTENSION
     Dosage: UNK UKN, UNK
  3. NEOBRON [Concomitant]
     Indication: HYPERTENSION
     Dosage: ONCE A DAY
  4. BONIVA [Concomitant]
     Indication: OSTEOPOROSIS
     Dosage: UNK UKN, UNK
     Dates: start: 2009, end: 2010
  5. AVALIDE [Concomitant]
     Dosage: 15 MG, UNK
  6. OMEPRAZOLE [Concomitant]
     Indication: GASTRITIS
     Dosage: UNK UKN, UNK
  7. TAFIL [Concomitant]
     Indication: DEPRESSION
     Dosage: UNK UKN, UNK
  8. RIVOTRIL [Concomitant]
     Dosage: 0.5 G, BY DAY

REACTIONS (11)
  - Coma [Recovered/Resolved]
  - Gait disturbance [Recovered/Resolved]
  - Gallbladder disorder [Recovered/Resolved]
  - Liver disorder [Recovered/Resolved]
  - Haemorrhage [Recovered/Resolved]
  - Speech disorder [Recovered/Resolved]
  - Movement disorder [Recovered/Resolved]
  - Pain in extremity [Recovered/Resolved]
  - Local swelling [Recovered/Resolved]
  - Blood pressure increased [Recovered/Resolved]
  - Malaise [Recovered/Resolved]
